FAERS Safety Report 6013327-7 (Version None)
Quarter: 2008Q4

REPORT INFORMATION
  Report Type: 
  Country: None (occurrence: None)
  Receive Date: 20081219
  Receipt Date: 20081210
  Transmission Date: 20090506
  Serious: Yes (Hospitalization, Other)
  Sender: FDA-Public Use
  Company Number: US-AMGEN-QUU323216

PATIENT
  Sex: Female

DRUGS (1)
  1. ENBREL [Suspect]
     Indication: PSORIASIS
     Route: 058
     Dates: start: 20040501

REACTIONS (6)
  - ARTHRITIS [None]
  - BLOOD CHOLESTEROL INCREASED [None]
  - FACIAL PALSY [None]
  - INTRACRANIAL ANEURYSM [None]
  - PRECANCEROUS SKIN LESION [None]
  - PSORIASIS [None]
